FAERS Safety Report 18912359 (Version 2)
Quarter: 2021Q2

REPORT INFORMATION
  Report Type: Spontaneous
  Country: JP (occurrence: JP)
  Receive Date: 20210219
  Receipt Date: 20210407
  Transmission Date: 20210717
  Serious: Yes (Life-Threatening, Hospitalization, Other)
  Sender: FDA-Public Use
  Company Number: JP-TAKEDA-2021TJP004605

PATIENT
  Age: 74 Year
  Sex: Male
  Weight: 56.1 kg

DRUGS (3)
  1. TRIAZOLAM. [Concomitant]
     Active Substance: TRIAZOLAM
     Dosage: UNK
     Route: 065
  2. NESINA [Suspect]
     Active Substance: ALOGLIPTIN BENZOATE
     Indication: TYPE 2 DIABETES MELLITUS
     Dosage: 12.5 MILLIGRAM, QD
     Route: 048
     Dates: start: 20191007, end: 20191107
  3. NESINA [Suspect]
     Active Substance: ALOGLIPTIN BENZOATE
     Dosage: 12.5 MILLIGRAM, QD
     Route: 048
     Dates: start: 20201110

REACTIONS (1)
  - Pancreatic carcinoma [Unknown]

NARRATIVE: CASE EVENT DATE: 20210210
